FAERS Safety Report 9633880 (Version 2)
Quarter: 2013Q4

REPORT INFORMATION
  Report Type: Spontaneous
  Country: US (occurrence: US)
  Receive Date: 20131021
  Receipt Date: 20131024
  Transmission Date: 20140711
  Serious: Yes (Other)
  Sender: FDA-Public Use
  Company Number: US-ROCHE-1288935

PATIENT
  Age: 67 Year
  Sex: Female
  Weight: 67.19 kg

DRUGS (6)
  1. TAMIFLU [Suspect]
     Indication: INFLUENZA
     Route: 065
     Dates: start: 20131010, end: 20131015
  2. SYNTHROID [Concomitant]
     Indication: HYPOTHYROIDISM
     Route: 048
  3. SIMVASTATIN [Concomitant]
     Indication: BLOOD CHOLESTEROL
     Route: 048
     Dates: start: 20130708
  4. DOXEPIN [Concomitant]
     Indication: ANXIETY
     Route: 048
  5. PAROXETINE [Concomitant]
     Indication: DEPRESSION
     Route: 048
     Dates: start: 20131010
  6. PAROXETINE [Concomitant]
     Indication: ANXIETY

REACTIONS (14)
  - Gastric haemorrhage [Recovering/Resolving]
  - Diarrhoea [Recovering/Resolving]
  - Nausea [Not Recovered/Not Resolved]
  - Retching [Not Recovered/Not Resolved]
  - Faeces discoloured [Unknown]
  - Abdominal distension [Not Recovered/Not Resolved]
  - Abdominal distension [Not Recovered/Not Resolved]
  - Abdominal distension [Not Recovered/Not Resolved]
  - Discomfort [Not Recovered/Not Resolved]
  - Constipation [Not Recovered/Not Resolved]
  - Gastric disorder [Unknown]
  - Abdominal pain [Unknown]
  - Drug dose omission [Unknown]
  - Increased upper airway secretion [Recovering/Resolving]
